FAERS Safety Report 8398203-7 (Version None)
Quarter: 2012Q2

REPORT INFORMATION
  Report Type: 
  Country: None (occurrence: None)
  Receive Date: 20120531
  Receipt Date: 20120529
  Transmission Date: 20120825
  Serious: Yes (Other)
  Sender: FDA-Public Use
  Company Number: PHHY2012CA046034

PATIENT
  Sex: Female

DRUGS (3)
  1. ZOLEDRONOC ACID [Suspect]
     Dosage: UNK
     Route: 042
     Dates: start: 20110812
  2. ZOLEDRONOC ACID [Suspect]
     Indication: OSTEOPOROSIS
     Dosage: UNK
     Route: 042
     Dates: start: 20090814
  3. ZOLEDRONOC ACID [Suspect]
     Route: 042
     Dates: start: 20100813

REACTIONS (7)
  - UPPER LIMB FRACTURE [None]
  - VOMITING [None]
  - SCAR [None]
  - HUMERUS FRACTURE [None]
  - MUSCLE RUPTURE [None]
  - SPINAL FRACTURE [None]
  - CONVULSION [None]
